FAERS Safety Report 9467732 (Version 2)
Quarter: 2013Q4

REPORT INFORMATION
  Report Type: Report from Study
  Country: CA (occurrence: CA)
  Receive Date: 20130821
  Receipt Date: 20131001
  Transmission Date: 20140711
  Serious: Yes (Hospitalization, Other)
  Sender: FDA-Public Use
  Company Number: CA-JNJFOC-20130808128

PATIENT
  Age: 60 Year
  Sex: Male
  Weight: 99 kg

DRUGS (25)
  1. REMICADE [Suspect]
     Indication: ANKYLOSING SPONDYLITIS
     Route: 042
     Dates: start: 200407
  2. RADIOTHERAPY [Suspect]
     Indication: LUNG NEOPLASM MALIGNANT
     Route: 065
     Dates: start: 201309
  3. OPIOIDS [Concomitant]
     Route: 065
  4. METFORMIN [Concomitant]
     Indication: DIABETES MELLITUS
     Dosage: 1 TABLET TWO TIMES A DAY AT LUNCH AND DINNER
     Route: 065
  5. ADVAIR [Concomitant]
     Dosage: 125MCG-25MCG, 2 INHALATIONS TWICE A DAY, MORNING AND NIGHT
     Route: 065
  6. VENTOLIN [Concomitant]
     Dosage: 100MCG/DOSE,1 TO 2 PUFFS 4 TIMES PER DAY AS NEEDED
     Route: 048
  7. FUROSEMIDE [Concomitant]
     Dosage: ONE AND HALF TABLET ONCE A DAY IN THE MORNING.
     Route: 065
  8. OXYNEO [Concomitant]
     Dosage: 1 TABLET 3 TIMES A DAY EVERY 8 HOURS, 120 TABLETS EVERY 30 DAYS
     Route: 065
  9. TELMISARTAN [Concomitant]
     Dosage: 1 TABLET ONCE A DAY IN THE MORNING
     Route: 065
  10. AVELOX [Concomitant]
     Dosage: TABLET ONCE A DAY AT SAME TIME EVERY DAY
     Route: 065
  11. ONGLYZA [Concomitant]
     Dosage: 1 TABLET ONCE A DAY AT SAME TIME EVERY DAY
     Route: 065
  12. SUPEUDOL [Concomitant]
     Indication: PAIN
     Dosage: 1 TABLET FOUR TIMES A DAY, IF NEEDED, FOR PAIN (RESCUE)
     Route: 065
  13. ATIVAN [Concomitant]
     Dosage: 1 TABLET ONCE A DAY SUBLINGUAL AT BEDTIME AS NEEDED
     Route: 060
  14. PMS-DOCUSATE SODIUM [Concomitant]
     Dosage: 1 CAPSULE TWICE A DAY IN THE MORNING AND THE NIGHT
     Route: 065
  15. SPIRIVA [Concomitant]
     Dosage: 18MCG, INHALE CONTENTS OF ONE CAPSULE ONCE A DAY USING HANDIHALER DEVICE
     Route: 055
  16. CIPROFLOXACIN [Concomitant]
     Dosage: 1 TABLET TWICE A DAY EVERY 2H FOR 7 DAYS
     Route: 065
  17. SUPEUDOL [Concomitant]
     Dosage: 1 TABLET FOUR TIMES A DAY FOR 5 DAYS
     Route: 065
  18. APO-CLINDAMYCIN [Concomitant]
     Dosage: 1 CAPSULE FOUR TIMES A DAY EVERY 6H MID-MEAL FOR 7 DAYS
     Route: 065
  19. CIPRO XL [Concomitant]
     Dosage: 1 TABLET ONCE A DAY AT SAME TIME EVERY DAY FOR 3 DAYS
     Route: 065
  20. CITALOPRAM [Concomitant]
     Dosage: 1 TABLET ONCE A DAY AT SAME TIME EVERY DAY
     Route: 065
  21. MICRO-K [Concomitant]
     Dosage: CAPSULE ONCE A DAY MID-MEAL
     Route: 065
  22. LYRICA [Concomitant]
     Dosage: 1 CAPSULE TWICE A DAY IN THE MORNING AND NIGHT
     Route: 065
  23. CYMBALTA [Concomitant]
     Dosage: 1 ENTERIC-COATED CAPSULE ONCE A DAY AT SAME TIME EVERY DAY
     Route: 065
  24. ASAPHEN [Concomitant]
     Dosage: 1 TABLET ONCE A DAY (ASPIRIN) (CONFLICTINGLY STATED AS ENTERIC-COATED CAPSULE)
     Route: 065
  25. ZOLOFT [Concomitant]
     Route: 065
     Dates: start: 20130924

REACTIONS (2)
  - Lung neoplasm malignant [Unknown]
  - Dyspnoea [Recovered/Resolved]
